FAERS Safety Report 11872775 (Version 1)
Quarter: 2015Q4

REPORT INFORMATION
  Report Type: Spontaneous
  Country: US (occurrence: US)
  Receive Date: 20151228
  Receipt Date: 20151228
  Transmission Date: 20160305
  Serious: No
  Sender: FDA-Public Use
  Company Number: US-PFIZER INC-2015419468

PATIENT
  Age: 51 Year
  Sex: Female
  Weight: 102 kg

DRUGS (6)
  1. CELEBREX [Suspect]
     Active Substance: CELECOXIB
     Dosage: THREE 100MG PILLS
     Route: 048
     Dates: start: 2014
  2. CELEBREX [Suspect]
     Active Substance: CELECOXIB
     Dosage: INCREASED 100MG THREE TIMES A DAY
     Route: 048
     Dates: start: 201506, end: 201510
  3. HYDROCODONE [Concomitant]
     Active Substance: HYDROCODONE
     Indication: ARTHRITIS
     Dosage: 5-325MG, ONCE OR TWICE A DAY, PILL
     Dates: start: 201412
  4. CELEBREX [Suspect]
     Active Substance: CELECOXIB
     Dosage: UNK, DOSE DECREASED
     Route: 048
  5. CELEBREX [Suspect]
     Active Substance: CELECOXIB
     Indication: ARTHRITIS
     Dosage: UNK
     Route: 048
     Dates: start: 1999, end: 2000
  6. CELEBREX [Suspect]
     Active Substance: CELECOXIB
     Dosage: ONE OR TWO OF 100MG, CAPSULE, DAILY
     Route: 048
     Dates: start: 201510

REACTIONS (10)
  - Chondropathy [Unknown]
  - Pain in extremity [Not Recovered/Not Resolved]
  - Joint injury [Unknown]
  - Weight increased [Not Recovered/Not Resolved]
  - Peripheral swelling [Unknown]
  - Fungal infection [Unknown]
  - Arthralgia [Unknown]
  - Back pain [Unknown]
  - Alopecia [Recovering/Resolving]
  - Tendon pain [Not Recovered/Not Resolved]

NARRATIVE: CASE EVENT DATE: 2000
